FAERS Safety Report 7608766-4 (Version None)
Quarter: 2011Q3

REPORT INFORMATION
  Report Type: 
  Country: None (occurrence: None)
  Receive Date: 20110714
  Receipt Date: 20110714
  Transmission Date: 20111222
  Serious: Yes (Hospitalization)
  Sender: FDA-Public Use
  Company Number: None

PATIENT
  Age: 32 Year
  Sex: Female
  Weight: 45 kg

DRUGS (1)
  1. ZOLPIDEM [Suspect]
     Indication: INSOMNIA
     Dates: start: 20110503, end: 20110708

REACTIONS (7)
  - RETROGRADE AMNESIA [None]
  - BLOOD GLUCOSE ABNORMAL [None]
  - VISION BLURRED [None]
  - DIZZINESS [None]
  - FALL [None]
  - ABDOMINAL PAIN UPPER [None]
  - AMNESIA [None]
